FAERS Safety Report 10678146 (Version 1)
Quarter: 2014Q4

REPORT INFORMATION
  Report Type: Spontaneous
  Country: US (occurrence: None)
  Receive Date: 20141223
  Receipt Date: 20141223
  Transmission Date: 20150529
  Serious: Yes (Other)
  Sender: FDA-Public Use
  Company Number: US-LHC-2014115

PATIENT
  Age: 16 Year
  Sex: Female
  Weight: 86 kg

DRUGS (25)
  1. HYDROMORPHONE [Concomitant]
     Active Substance: HYDROMORPHONE
  2. PROPOFOL. [Concomitant]
     Active Substance: PROPOFOL
  3. MIDAZOLAM [Concomitant]
     Active Substance: MIDAZOLAM\MIDAZOLAM HYDROCHLORIDE
  4. PROPOFOL. [Concomitant]
     Active Substance: PROPOFOL
  5. XLOCAIN [Concomitant]
  6. DEXAETHASONE [Concomitant]
  7. FENTANYL. [Concomitant]
     Active Substance: FENTANYL
  8. AIR [Concomitant]
     Active Substance: AIR\NITROGEN\OXYGEN
  9. OXYGEN (GENERIC) (OXYGEN) (GAS FOR INHALATION) (VERUM) [Suspect]
     Active Substance: OXYGEN
     Indication: TURBINECTOMY
     Dosage: 10 L/MIN, INHALATION
  10. CLINDAMYCIN [Concomitant]
     Active Substance: CLINDAMYCIN\CLINDAMYCIN PHOSPHATE
  11. MIDAZOLAM [Concomitant]
     Active Substance: MIDAZOLAM\MIDAZOLAM HYDROCHLORIDE
  12. FENTANYL. [Concomitant]
     Active Substance: FENTANYL
  13. GLYCOPYRROLATE. [Concomitant]
     Active Substance: GLYCOPYRROLATE
  14. VECURONIUM [Concomitant]
     Active Substance: VECURONIUM BROMIDE
  15. ONDANSETRON [Concomitant]
     Active Substance: ONDANSETRON
  16. NEOSTIGMINE [Concomitant]
     Active Substance: NEOSTIGMINE
  17. CLINDAMYCIN [Concomitant]
     Active Substance: CLINDAMYCIN\CLINDAMYCIN PHOSPHATE
  18. ISOFLURANE. [Concomitant]
     Active Substance: ISOFLURANE
  19. MIDAZOLAM [Concomitant]
     Active Substance: MIDAZOLAM\MIDAZOLAM HYDROCHLORIDE
  20. OXYGEN (GENERIC) (OXYGEN) (GAS FOR INHALATION) (VERUM) [Suspect]
     Active Substance: OXYGEN
     Indication: OSTEOTOMY
     Dosage: 10 L/MIN, INHALATION
  21. MIDAZOLAM [Concomitant]
     Active Substance: MIDAZOLAM\MIDAZOLAM HYDROCHLORIDE
  22. DEXAMETHASONE. [Concomitant]
     Active Substance: DEXAMETHASONE
  23. DEXAMETHASONE. [Concomitant]
     Active Substance: DEXAMETHASONE
  24. NITROUS OXIDE. [Concomitant]
     Active Substance: NITROUS OXIDE
  25. METOCLOPRAMIDE. [Concomitant]
     Active Substance: METOCLOPRAMIDE

REACTIONS (9)
  - Hypotension [None]
  - Local swelling [None]
  - Breath sounds absent [None]
  - Cyanosis [None]
  - Swelling face [None]
  - Pneumothorax [None]
  - Sinus tachycardia [None]
  - Oxygen saturation decreased [None]
  - Subcutaneous emphysema [None]
